FAERS Safety Report 14714602 (Version 2)
Quarter: 2018Q2

REPORT INFORMATION
  Report Type: Spontaneous
  Country: US (occurrence: US)
  Receive Date: 20180404
  Receipt Date: 20180405
  Transmission Date: 20180711
  Serious: No
  Sender: FDA-Public Use
  Company Number: US-PFIZER INC-2018132995

PATIENT
  Age: 76 Year
  Sex: Male
  Weight: 64.41 kg

DRUGS (2)
  1. SUTENT [Suspect]
     Active Substance: SUNITINIB MALATE
     Indication: RENAL CANCER METASTATIC
     Dosage: 50 MG, CYCLIC (D 1-28 Q 42 DAYS)
     Route: 048
     Dates: start: 20180321, end: 201803
  2. SUTENT [Suspect]
     Active Substance: SUNITINIB MALATE
     Dosage: 50 MG, CYCLIC (DAILY X 28 DAYS THEN 2 WEEKS OFF)
     Route: 048
     Dates: start: 20180321

REACTIONS (9)
  - Peripheral swelling [Unknown]
  - Haemoptysis [Unknown]
  - Vision blurred [Unknown]
  - Nausea [Unknown]
  - Dyspnoea exertional [Unknown]
  - Cough [Unknown]
  - Vomiting [Unknown]
  - Epistaxis [Unknown]
  - Dyspnoea [Unknown]

NARRATIVE: CASE EVENT DATE: 201803
